FAERS Safety Report 10527081 (Version 1)
Quarter: 2014Q4

REPORT INFORMATION
  Report Type: Spontaneous
  Country: US (occurrence: None)
  Receive Date: 20141016
  Receipt Date: 20141016
  Transmission Date: 20150528
  Serious: Yes (Congenital Anomaly)
  Sender: FDA-Public Use
  Company Number: None

PATIENT
  Age: 1 Day
  Sex: Male
  Weight: 3.18 kg

DRUGS (2)
  1. LAMOTRIGINE. [Suspect]
     Active Substance: LAMOTRIGINE
     Indication: DEPRESSION
     Dosage: 2 PILLS?ONCE DAILY ?TAKEN BY MOUTH
     Route: 048
  2. LAMOTRIGINE. [Suspect]
     Active Substance: LAMOTRIGINE
     Indication: AFFECTIVE DISORDER
     Dosage: 2 PILLS?ONCE DAILY ?TAKEN BY MOUTH
     Route: 048

REACTIONS (2)
  - Cardiac murmur [None]
  - Foetal exposure during pregnancy [None]

NARRATIVE: CASE EVENT DATE: 20060628
